FAERS Safety Report 25466879 (Version 1)
Quarter: 2025Q2

REPORT INFORMATION
  Report Type: Spontaneous
  Country: GB (occurrence: GB)
  Receive Date: 20250623
  Receipt Date: 20250623
  Transmission Date: 20250716
  Serious: Yes (Other)
  Sender: SAMSUNG BIOEPIS
  Company Number: None

PATIENT
  Age: 59 Year
  Sex: Female

DRUGS (1)
  1. IMRALDI [Suspect]
     Active Substance: ADALIMUMAB
     Indication: Uveitis
     Dosage: 40MG ONCE EVERY 2 WEEKS;

REACTIONS (2)
  - Swelling face [Unknown]
  - Illness [Unknown]

NARRATIVE: CASE EVENT DATE: 20250610
